FAERS Safety Report 7668001-8 (Version None)
Quarter: 2011Q3

REPORT INFORMATION
  Report Type: 
  Country: None (occurrence: None)
  Receive Date: 20110808
  Receipt Date: 20110725
  Transmission Date: 20111222
  Serious: Yes (Other)
  Sender: FDA-Public Use
  Company Number: FR-ELI_LILLY_AND_COMPANY-FR201104006034

PATIENT
  Age: 52 Year
  Sex: Female
  Weight: 50 kg

DRUGS (1)
  1. FORTEO [Suspect]
     Indication: OSTEOPOROSIS
     Dosage: 20 UG, QD
     Route: 058
     Dates: start: 20110316, end: 20110722

REACTIONS (3)
  - DECREASED APPETITE [None]
  - INJECTION SITE ERYTHEMA [None]
  - WEIGHT DECREASED [None]
